FAERS Safety Report 6762682-9 (Version None)
Quarter: 2010Q2

REPORT INFORMATION
  Report Type: 
  Country: None (occurrence: None)
  Receive Date: 20100609
  Receipt Date: 20100602
  Transmission Date: 20101027
  Serious: Yes (Hospitalization)
  Sender: FDA-Public Use
  Company Number: A0862436A

PATIENT
  Age: 80 Year
  Sex: Male

DRUGS (8)
  1. ADVAIR DISKUS 100/50 [Suspect]
     Indication: CHRONIC OBSTRUCTIVE PULMONARY DISEASE
     Dosage: 1PUFF TWICE PER DAY
     Route: 055
     Dates: start: 20090101
  2. ALBUTEROL/IPRATROPIUM BROMIDE [Concomitant]
  3. BENZONATATE [Concomitant]
  4. NEXIUM [Concomitant]
  5. TEMAZEPAM [Concomitant]
  6. SIMVASTATIN [Concomitant]
  7. ASPIRIN [Concomitant]
  8. OXYGEN [Concomitant]

REACTIONS (7)
  - CARBON DIOXIDE INCREASED [None]
  - DYSPNOEA [None]
  - GASTRIC INFECTION [None]
  - INSOMNIA [None]
  - PNEUMONIA [None]
  - PULMONARY FUNCTION TEST DECREASED [None]
  - THROMBOSIS [None]
